FAERS Safety Report 22016858 (Version 1)
Quarter: 2023Q1

REPORT INFORMATION
  Report Type: Spontaneous
  Country: US (occurrence: US)
  Receive Date: 20230221
  Receipt Date: 20230221
  Transmission Date: 20230417
  Serious: No
  Sender: FDA-Public Use
  Company Number: US-SUNOVION-2023SUN000291AA

PATIENT
  Age: 42 Year
  Sex: Male

DRUGS (2)
  1. LATUDA [Suspect]
     Active Substance: LURASIDONE HYDROCHLORIDE
     Dosage: 80 MG
     Route: 048
  2. LATUDA [Suspect]
     Active Substance: LURASIDONE HYDROCHLORIDE
     Dosage: 40 MG (HAF 80MG TAB)
     Route: 048

REACTIONS (2)
  - Tremor [Unknown]
  - Wrong technique in product usage process [Unknown]
